FAERS Safety Report 12963544 (Version 1)
Quarter: 2016Q4

REPORT INFORMATION
  Report Type: Spontaneous
  Country: US (occurrence: US)
  Receive Date: 20161122
  Receipt Date: 20161122
  Transmission Date: 20170207
  Serious: No
  Sender: FDA-Public Use
  Company Number: US-BAYER-2016-222702

PATIENT
  Age: 74 Year
  Sex: Female
  Weight: 49.89 kg

DRUGS (1)
  1. MIRALAX [Suspect]
     Active Substance: POLYETHYLENE GLYCOL 3350
     Indication: GASTROINTESTINAL DISORDER
     Dosage: TWO PACKETS AT A TIME
     Dates: start: 2016

REACTIONS (3)
  - Drug ineffective [Unknown]
  - Product use issue [None]
  - Product use issue [Unknown]

NARRATIVE: CASE EVENT DATE: 2016
